FAERS Safety Report 5583195-6 (Version None)
Quarter: 2008Q1

REPORT INFORMATION
  Report Type: 
  Country: None (occurrence: None)
  Receive Date: 20080103
  Receipt Date: 20080103
  Transmission Date: 20080703
  Serious: Yes (Other)
  Sender: FDA-Public Use
  Company Number: None

PATIENT
  Age: 37 Year
  Sex: Female
  Weight: 49.8957 kg

DRUGS (2)
  1. CHANTIX [Suspect]
     Indication: NICOTINE DEPENDENCE
     Dosage: 0.5 MG  B.I.D.  PO
     Route: 048
     Dates: start: 20071224, end: 20071230
  2. CHANTIX [Suspect]
     Indication: SMOKING CESSATION THERAPY
     Dosage: 0.5 MG  B.I.D.  PO
     Route: 048
     Dates: start: 20071224, end: 20071230

REACTIONS (9)
  - ANHEDONIA [None]
  - ANOREXIA [None]
  - ANORGASMIA [None]
  - HYPERSOMNIA [None]
  - MAJOR DEPRESSION [None]
  - PSYCHOMOTOR RETARDATION [None]
  - SLEEP DISORDER [None]
  - SOMNOLENCE [None]
  - SUICIDAL IDEATION [None]
